FAERS Safety Report 24451711 (Version 1)
Quarter: 2024Q4

REPORT INFORMATION
  Report Type: Spontaneous
  Country: CN (occurrence: CN)
  Receive Date: 20241017
  Receipt Date: 20241017
  Transmission Date: 20250114
  Serious: Yes (Life-Threatening)
  Sender: PURDUE
  Company Number: CN-NAPPMUNDI-GBR-2024-0120408

PATIENT
  Age: 82 Year
  Sex: Female

DRUGS (1)
  1. MORPHINE SULFATE [Suspect]
     Active Substance: MORPHINE SULFATE
     Indication: Tumour pain
     Dosage: 30 MILLIGRAM, BID
     Route: 048
     Dates: start: 20241003, end: 20241003

REACTIONS (1)
  - Depressed level of consciousness [Recovering/Resolving]

NARRATIVE: CASE EVENT DATE: 20241004
